FAERS Safety Report 5515942-3 (Version None)
Quarter: 2007Q4

REPORT INFORMATION
  Report Type: 
  Country: None (occurrence: None)
  Receive Date: 20071109
  Receipt Date: 20070910
  Transmission Date: 20080405
  Serious: Yes (Hospitalization)
  Sender: FDA-Public Use
  Company Number: MK-6037914

PATIENT
  Age: 34 Year
  Sex: Male

DRUGS (3)
  1. AZATHIOPRINE [Suspect]
     Indication: IMMUNOSUPPRESSANT DRUG THERAPY
     Dosage: 50 MG; TWICE A DAY
  2. MESALAMINE [Concomitant]
  3. PREDNISONE [Concomitant]

REACTIONS (6)
  - ABDOMINAL PAIN LOWER [None]
  - C-REACTIVE PROTEIN INCREASED [None]
  - CYTOMEGALOVIRUS HEPATITIS [None]
  - DIARRHOEA HAEMORRHAGIC [None]
  - INTESTINAL MUCOSAL HYPERTROPHY [None]
  - LEUKOPENIA [None]
